FAERS Safety Report 24049366 (Version 1)
Quarter: 2024Q3

REPORT INFORMATION
  Report Type: Spontaneous
  Country: DE (occurrence: DE)
  Receive Date: 20240704
  Receipt Date: 20240704
  Transmission Date: 20241017
  Serious: No
  Sender: ALKEM
  Company Number: DE-ALKEM LABORATORIES LIMITED-DE-ALKEM-2024-12361

PATIENT
  Age: 51 Year
  Sex: Female

DRUGS (8)
  1. IBUPROFEN [Suspect]
     Active Substance: IBUPROFEN
     Indication: Inflammation
     Dosage: 600 MILLIGRAM (EVERY 0.33 DAY)
     Route: 065
  2. COMIRNATY (TOZINAMERAN) [Suspect]
     Active Substance: TOZINAMERAN
     Indication: Product used for unknown indication
     Dosage: UNK
     Route: 065
     Dates: start: 20211214
  3. OCREVUS [Suspect]
     Active Substance: OCRELIZUMAB
     Indication: Primary progressive multiple sclerosis
     Dosage: 300 MILLIGRAM (EVERY 14 DAY)
     Route: 042
     Dates: start: 20200224
  4. OCREVUS [Suspect]
     Active Substance: OCRELIZUMAB
     Dosage: 600 MILLIGRAM ( EVERY 191 DAY)
     Route: 042
     Dates: start: 20200917
  5. OCREVUS [Suspect]
     Active Substance: OCRELIZUMAB
     Dosage: 600 MILLIGRAM ( EVERY 166 DAY)
     Route: 042
     Dates: start: 20210824
  6. BEROTEC [Concomitant]
     Active Substance: FENOTEROL HYDROBROMIDE
     Indication: Product used for unknown indication
     Dosage: UNK
     Route: 065
  7. DALFAMPRIDINE [Concomitant]
     Active Substance: DALFAMPRIDINE
     Indication: Product used for unknown indication
     Dosage: 10 MILLIGRAM
     Route: 065
  8. TILIDINE [Concomitant]
     Active Substance: TILIDINE
     Indication: Product used for unknown indication
     Dosage: UNK
     Route: 065

REACTIONS (24)
  - Fall [Unknown]
  - Immunosuppression [Not Recovered/Not Resolved]
  - Oral herpes [Recovered/Resolved]
  - Bursitis [Recovered/Resolved]
  - Contusion [Recovered/Resolved]
  - Arthralgia [Recovered/Resolved]
  - Fatigue [Recovered/Resolved]
  - Middle insomnia [Recovered/Resolved]
  - Muscle spasms [Recovering/Resolving]
  - Dry skin [Recovering/Resolving]
  - Muscular weakness [Recovered/Resolved]
  - Vitamin D decreased [Recovered/Resolved]
  - Haematoma [Recovered/Resolved]
  - Balance disorder [Recovered/Resolved]
  - Asthenia [Not Recovered/Not Resolved]
  - Pain in extremity [Recovered/Resolved]
  - Muscle tightness [Recovered/Resolved]
  - Cystitis noninfective [Recovered/Resolved]
  - Uhthoff^s phenomenon [Recovered/Resolved]
  - Self-medication [Unknown]
  - Drug ineffective [Unknown]
  - Inflammation [Recovered/Resolved]
  - Pain [Recovered/Resolved]
  - Alopecia [Recovered/Resolved]

NARRATIVE: CASE EVENT DATE: 20200317
